FAERS Safety Report 10070458 (Version 1)
Quarter: 2014Q2

REPORT INFORMATION
  Report Type: Spontaneous
  Country: US (occurrence: US)
  Receive Date: 20140410
  Receipt Date: 20140410
  Transmission Date: 20141212
  Serious: Yes (Hospitalization)
  Sender: FDA-Public Use
  Company Number: US-BANPHARM-20142514

PATIENT
  Age: 19 Year
  Sex: Male

DRUGS (2)
  1. IBUPROFEN UNKNOWN PRODUCT [Suspect]
     Dosage: 200-300 DF,
     Route: 048
  2. ALPRAZOLAM [Concomitant]

REACTIONS (5)
  - Somnolence [Recovered/Resolved]
  - Depressed level of consciousness [Recovered/Resolved]
  - Metabolic acidosis [Recovered/Resolved]
  - Haematemesis [Recovered/Resolved]
  - Overdose [Recovered/Resolved]
